FAERS Safety Report 5099285-0 (Version None)
Quarter: 2006Q3

REPORT INFORMATION
  Report Type: 
  Country: None (occurrence: None)
  Receive Date: 20060731
  Receipt Date: 20060118
  Transmission Date: 20061208
  Serious: Yes (Other)
  Sender: FDA-Public Use
  Company Number: US-2006-000918

PATIENT
  Age: 59 Year
  Sex: Male
  Weight: 86.2 kg

DRUGS (5)
  1. MAGNEVIST [Suspect]
     Indication: NUCLEAR MAGNETIC RESONANCE IMAGING
     Dosage: 15 ML, 1 DOSE, INTRAVENOUS
     Route: 042
     Dates: start: 20060117, end: 20060117
  2. ASPIRIN [Concomitant]
  3. LIPITOR /NET/ (ATORVASTIN CALCIUM) [Concomitant]
  4. ZESTRIL [Concomitant]
  5. ATENOLOL [Concomitant]

REACTIONS (8)
  - CONVULSION [None]
  - COUGH [None]
  - DYSPNOEA [None]
  - EYE SWELLING [None]
  - OEDEMA MOUTH [None]
  - SNEEZING [None]
  - SWELLING FACE [None]
  - VOMITING [None]
